FAERS Safety Report 5494049-8 (Version None)
Quarter: 2007Q4

REPORT INFORMATION
  Report Type: 
  Country: None (occurrence: None)
  Receive Date: 20071022
  Receipt Date: 20071016
  Transmission Date: 20080405
  Serious: Yes (Hospitalization)
  Sender: FDA-Public Use
  Company Number: 2007SP021019

PATIENT
  Age: 51 Year
  Sex: Female
  Weight: 56.1 kg

DRUGS (2)
  1. TEMOZOLOMIDE [Suspect]
     Indication: NON-SMALL CELL LUNG CANCER
     Dosage: 75 MG/M2; QD; PO, 375 MG; QD; PO
     Route: 048
     Dates: start: 20070106, end: 20070201
  2. TEMOZOLOMIDE [Suspect]
     Indication: NON-SMALL CELL LUNG CANCER
     Dosage: 75 MG/M2; QD; PO, 375 MG; QD; PO
     Route: 048
     Dates: start: 20061117

REACTIONS (6)
  - BONE PAIN [None]
  - DISSEMINATED INTRAVASCULAR COAGULATION [None]
  - PAIN [None]
  - SPINAL CORD COMPRESSION [None]
  - THROMBOCYTOPENIA [None]
  - WHITE BLOOD CELL COUNT DECREASED [None]
